FAERS Safety Report 16883470 (Version 1)
Quarter: 2019Q4

REPORT INFORMATION
  Report Type: Spontaneous
  Country: US (occurrence: US)
  Receive Date: 20191004
  Receipt Date: 20191004
  Transmission Date: 20200122
  Serious: No
  Sender: FDA-Public Use
  Company Number: US-TEVA-2019-US-1118796

PATIENT
  Sex: Female

DRUGS (1)
  1. CLARAVIS [Suspect]
     Active Substance: ISOTRETINOIN
     Route: 065
     Dates: start: 20190807

REACTIONS (5)
  - Emotional disorder [Unknown]
  - Dry skin [Unknown]
  - Lip dry [Unknown]
  - Product physical issue [Unknown]
  - Ocular hyperaemia [Unknown]
